FAERS Safety Report 7572826-7 (Version None)
Quarter: 2011Q2

REPORT INFORMATION
  Report Type: 
  Country: None (occurrence: None)
  Receive Date: 20110627
  Receipt Date: 20110622
  Transmission Date: 20111010
  Serious: Yes (Other)
  Sender: FDA-Public Use
  Company Number: US-PFIZER INC-2011115067

PATIENT
  Sex: Male

DRUGS (3)
  1. VYVANSE [Concomitant]
     Indication: ATTENTION DEFICIT/HYPERACTIVITY DISORDER
     Dosage: 30 MG DAILY
     Dates: start: 20100708, end: 20110420
  2. PROSCAR [Concomitant]
     Indication: PROPHYLAXIS
     Dosage: 1 MG, DAILY
  3. PRISTIQ [Suspect]
     Indication: ANXIETY
     Dosage: 50 MG, DAILY
     Route: 048
     Dates: start: 20100708, end: 20110325

REACTIONS (1)
  - BLOOD TRIGLYCERIDES INCREASED [None]
